FAERS Safety Report 12306835 (Version 1)
Quarter: 2016Q2

REPORT INFORMATION
  Report Type: Spontaneous
  Country: CN (occurrence: CN)
  Receive Date: 20160426
  Receipt Date: 20160426
  Transmission Date: 20160815
  Serious: Yes (Hospitalization)
  Sender: FDA-Public Use
  Company Number: CN-BAYER-2016-076635

PATIENT
  Age: 77 Year
  Sex: Male
  Weight: 60 kg

DRUGS (2)
  1. BAYASPIRIN [Suspect]
     Active Substance: ASPIRIN
     Indication: PLATELET DISORDER
     Dosage: 100 MG, QD
     Route: 048
     Dates: start: 20151024, end: 20151029
  2. PLAVIX [Suspect]
     Active Substance: CLOPIDOGREL BISULFATE
     Indication: PLATELET DISORDER
     Dosage: 75 MG, QD
     Route: 048
     Dates: start: 20151024, end: 20151030

REACTIONS (2)
  - Visual impairment [Recovering/Resolving]
  - Conjunctival haemorrhage [Recovering/Resolving]

NARRATIVE: CASE EVENT DATE: 20151029
